FAERS Safety Report 9982671 (Version 1)
Quarter: 2014Q1

REPORT INFORMATION
  Report Type: Report from Study
  Country: US (occurrence: US)
  Receive Date: 20140307
  Receipt Date: 20140307
  Transmission Date: 20141002
  Serious: No
  Sender: FDA-Public Use
  Company Number: US-ABBVIE-13P-163-1180828-00

PATIENT
  Age: 66 Year
  Sex: Male

DRUGS (11)
  1. HUMIRA [Suspect]
     Indication: COLITIS ULCERATIVE
     Dates: start: 20131105
  2. MULTIVITAMINS [Concomitant]
     Indication: VITAMIN SUPPLEMENTATION
  3. LIALDA [Concomitant]
     Indication: COLITIS ULCERATIVE
  4. BENAZEPRIL [Concomitant]
     Indication: HYPERTENSION
  5. PEPCID [Concomitant]
     Indication: DYSPEPSIA
  6. BENABIOTIC PROBIOTIC [Concomitant]
     Indication: PRODUCT USED FOR UNKNOWN INDICATION
  7. DIPHENOXYLATE/ATROPINE [Concomitant]
     Indication: ILL-DEFINED DISORDER
  8. SYMBICORT [Concomitant]
     Indication: CHRONIC OBSTRUCTIVE PULMONARY DISEASE
     Dosage: 160/4.5 MG
  9. SPIRIVA [Concomitant]
     Indication: CHRONIC OBSTRUCTIVE PULMONARY DISEASE
  10. VENTOLIN HFA [Concomitant]
     Indication: CHRONIC OBSTRUCTIVE PULMONARY DISEASE
  11. PREDNISONE [Concomitant]
     Indication: PRODUCT USED FOR UNKNOWN INDICATION
     Dosage: TAPER

REACTIONS (1)
  - Colitis ulcerative [Recovering/Resolving]
